FAERS Safety Report 13566733 (Version 1)
Quarter: 2017Q2

REPORT INFORMATION
  Report Type: Spontaneous
  Country: NO (occurrence: NO)
  Receive Date: 20170522
  Receipt Date: 20170522
  Transmission Date: 20170830
  Serious: Yes (Other)
  Sender: FDA-Public Use
  Company Number: NO-CONCORDIA PHARMACEUTICALS INC.-GSH201705-002862

PATIENT
  Sex: Female

DRUGS (10)
  1. RITUXIMAB [Suspect]
     Active Substance: RITUXIMAB
     Dates: start: 201010
  2. RITUXIMAB [Suspect]
     Active Substance: RITUXIMAB
     Indication: CRYOGLOBULINAEMIA
     Dosage: 1 G  TWICE 2 WEEKS APART IN COMBINATION WITH METHOTREXATE
     Dates: start: 201003
  3. DEXAMETHASONE. [Suspect]
     Active Substance: DEXAMETHASONE
     Indication: HYPERGAMMAGLOBULINAEMIA BENIGN MONOCLONAL
     Dosage: VD REGIMEN, ON DAYS 1, 2, 4, 5, 8, 9, 11, 12  UNDERDAILY ACYCLOVIR PROPHYLAXIS
  4. BORTEZOMIB [Suspect]
     Active Substance: BORTEZOMIB
     Dosage: AT THE START OF THE FOURTH CYCLE BEFORE VD
     Dates: start: 201108
  5. BORTEZOMIB [Suspect]
     Active Substance: BORTEZOMIB
     Indication: HYPERGAMMAGLOBULINAEMIA BENIGN MONOCLONAL
     Dosage: ON DAYS 1, 4, 8, 11
     Route: 042
     Dates: start: 201105
  6. METHOTREXATE. [Suspect]
     Active Substance: METHOTREXATE
     Indication: CUTANEOUS VASCULITIS
  7. CYCLOSPORINE. [Suspect]
     Active Substance: CYCLOSPORINE
     Indication: CUTANEOUS VASCULITIS
  8. AZATHIOPRINE. [Suspect]
     Active Substance: AZATHIOPRINE
     Indication: CUTANEOUS VASCULITIS
  9. PREDNISOLONE. [Suspect]
     Active Substance: PREDNISOLONE
     Indication: CUTANEOUS VASCULITIS
     Dosage: DOSES BETWEEN 20 AND 60 MG DAILY
  10. ACYCLOVIR. [Concomitant]
     Active Substance: ACYCLOVIR
     Indication: PROPHYLAXIS

REACTIONS (2)
  - Polyneuropathy [Unknown]
  - Drug ineffective [Unknown]
